FAERS Safety Report 11232817 (Version 2)
Quarter: 2015Q3

REPORT INFORMATION
  Report Type: Spontaneous
  Country: AR (occurrence: AR)
  Receive Date: 20150701
  Receipt Date: 20150710
  Transmission Date: 20151125
  Serious: Yes (Other)
  Sender: FDA-Public Use
  Company Number: CHPA2015AR007806

PATIENT
  Age: 69 Year
  Sex: Male

DRUGS (2)
  1. NICOTINELL [Suspect]
     Active Substance: NICOTINE
     Indication: SMOKING CESSATION THERAPY
     Dosage: 7 TO 8 DF DAILY
     Route: 065
     Dates: start: 2011
  2. NICOTINELL [Suspect]
     Active Substance: NICOTINE
     Dosage: 2 DF, DAILY
     Route: 065

REACTIONS (2)
  - Wrong technique in product usage process [Unknown]
  - Drug dependence [Unknown]

NARRATIVE: CASE EVENT DATE: 2011
